FAERS Safety Report 13179645 (Version 1)
Quarter: 2017Q1

REPORT INFORMATION
  Report Type: Spontaneous
  Country: US (occurrence: US)
  Receive Date: 20170202
  Receipt Date: 20170202
  Transmission Date: 20170428
  Serious: Yes (Disabling)
  Sender: FDA-Public Use
  Company Number: None

PATIENT
  Age: 65 Year
  Sex: Male
  Weight: 86.4 kg

DRUGS (1)
  1. OSELTAMIVIR PHOSPHATE. [Suspect]
     Active Substance: OSELTAMIVIR PHOSPHATE
     Indication: INFLUENZA
     Dosage: ?          QUANTITY:10 CAPSULE(S);?
     Route: 048
     Dates: start: 20170131, end: 20170202

REACTIONS (10)
  - Eye pain [None]
  - Eye pruritus [None]
  - Dry mouth [None]
  - Ocular hyperaemia [None]
  - Headache [None]
  - Cough [None]
  - Nausea [None]
  - Insomnia [None]
  - Arrhythmia [None]
  - Diarrhoea [None]

NARRATIVE: CASE EVENT DATE: 20170201
